FAERS Safety Report 8336932 (Version 4)
Quarter: 2013Q1

REPORT INFORMATION
  Report Type: Spontaneous
  Country: US (occurrence: US)
  Receive Date: 20120113
  Receipt Date: 20130102
  Transmission Date: 20140127
  Serious: Yes (Congenital Anomaly, Other)
  Sender: FDA-Public Use
  Company Number: US-PFIZER INC-2011308682

PATIENT
  Sex: Male
  Weight: 3.3 kg

DRUGS (19)
  1. ZOLOFT [Suspect]
     Indication: DEPRESSION
     Dosage: UNK
     Route: 064
     Dates: start: 20070531, end: 201106
  2. ZOLOFT [Suspect]
     Indication: ANXIETY
     Dosage: 100 MG, DAILY
     Route: 064
  3. ZOLOFT [Suspect]
     Indication: AFFECTIVE DISORDER
     Dosage: 100 MG, DAILY
     Route: 064
     Dates: start: 200808
  4. ZOLOFT [Suspect]
     Dosage: 50 MG, DAILY FOR ONE WEEK
     Route: 064
     Dates: start: 20080821, end: 200808
  5. SERTRALINE HCL [Suspect]
     Dosage: 100 MG, UNK
     Route: 064
     Dates: start: 20070531
  6. AMPICILLIN [Concomitant]
     Indication: URINARY TRACT INFECTION
     Dosage: 250 MG, 4X/DAY FOR THREE DAYS
     Route: 064
     Dates: start: 20080612, end: 200806
  7. PRENATAL VITAMINS [Concomitant]
     Dosage: ONCE DAILY
     Route: 064
  8. LEXAPRO [Concomitant]
     Dosage: UNK
     Route: 064
  9. METHOCARBAMOL [Concomitant]
     Dosage: UNK
     Route: 064
  10. CEPHALEXIN [Concomitant]
     Dosage: UNK
     Route: 064
  11. LORAZEPAM [Concomitant]
     Dosage: UNK
     Route: 064
  12. PITOCIN [Concomitant]
     Dosage: UNK
     Route: 064
  13. FENTANYL [Concomitant]
     Dosage: UNK
     Route: 064
  14. MECLIZINE [Concomitant]
     Dosage: UNK
     Route: 064
  15. OXYCODONE [Concomitant]
     Dosage: UNK
     Route: 064
  16. CELEBREX [Concomitant]
     Dosage: UNK
     Route: 064
  17. TERBINAFINE [Concomitant]
     Dosage: UNK
     Route: 064
  18. IBUPROFEN [Concomitant]
     Dosage: UNK
     Route: 064
  19. LAMISIL [Concomitant]
     Dosage: UNK
     Route: 064

REACTIONS (7)
  - Maternal exposure timing unspecified [Unknown]
  - Pulmonary valve stenosis [Unknown]
  - Patent ductus arteriosus [Unknown]
  - Pulmonary artery dilatation [Unknown]
  - Pulmonary valve incompetence [Unknown]
  - Atrial septal defect [Recovered/Resolved]
  - Right ventricular hypertrophy [Recovered/Resolved]
